FAERS Safety Report 7965478-5 (Version None)
Quarter: 2011Q4

REPORT INFORMATION
  Report Type: 
  Country: None (occurrence: None)
  Receive Date: 20111208
  Receipt Date: 20111205
  Transmission Date: 20120403
  Serious: Yes (Hospitalization, Other)
  Sender: FDA-Public Use
  Company Number: CA-TEVA-312202USA

PATIENT
  Age: 19 Year
  Sex: Female

DRUGS (5)
  1. PREDNISONE TAB [Suspect]
     Route: 048
  2. HYDROXYCHLOROQUINE [Suspect]
     Dosage: 400 MILLIGRAM;
  3. METHYLPREDNISOLONE [Suspect]
     Dosage: 375 MILLIGRAM;
     Route: 042
  4. DAPSONE [Suspect]
  5. METHYLPREDNISOLONE [Suspect]
     Indication: ANGIOEDEMA
     Dosage: 240 MILLIGRAM;
     Route: 042

REACTIONS (8)
  - HAEMOLYTIC ANAEMIA [None]
  - METHAEMOGLOBINAEMIA [None]
  - ANGIOEDEMA [None]
  - CONVULSION [None]
  - HYPERGLYCAEMIA [None]
  - MOOD ALTERED [None]
  - POSTERIOR REVERSIBLE ENCEPHALOPATHY SYNDROME [None]
  - MYOPATHY [None]
